FAERS Safety Report 4309227-0 (Version None)
Quarter: 2004Q1

REPORT INFORMATION
  Report Type: 
  Country: None (occurrence: None)
  Receive Date: 20040227
  Receipt Date: 20040216
  Transmission Date: 20041129
  Serious: No
  Sender: FDA-Public Use
  Company Number: 04P-167-0250749-00

PATIENT
  Age: 37 Year
  Sex: Female

DRUGS (2)
  1. MERIDIA [Suspect]
     Dosage: 10 MG, PER ORAL
     Route: 048
     Dates: start: 20040113, end: 20040127
  2. PAROXETINE HCL [Concomitant]

REACTIONS (3)
  - DISORIENTATION [None]
  - HALLUCINATION [None]
  - PANIC ATTACK [None]
